FAERS Safety Report 19055929 (Version 3)
Quarter: 2021Q2

REPORT INFORMATION
  Report Type: Spontaneous
  Country: SI (occurrence: SI)
  Receive Date: 20210325
  Receipt Date: 20210505
  Transmission Date: 20210717
  Serious: Yes (Other)
  Sender: FDA-Public Use
  Company Number: SI-BAYER-2021-105784

PATIENT
  Age: 63 Year
  Sex: Male
  Weight: 115 kg

DRUGS (6)
  1. KOVALTRY [Suspect]
     Active Substance: ANTIHEMOPHILIC FACTOR, HUMAN RECOMBINANT
     Indication: PROPHYLAXIS
     Dosage: UNK ; DURING SURGERY AND REHABILITATION AFTER ATHEROMA REMOVAL
     Dates: start: 20171017, end: 20171104
  2. KOVALTRY [Suspect]
     Active Substance: ANTIHEMOPHILIC FACTOR, HUMAN RECOMBINANT
     Indication: HAEMOPHILIA
     Dosage: 2000 IU, TIW; PRIOR TO ATHEROMA REMOVAL SURGERY
     Dates: start: 201701, end: 20171017
  3. KOVALTRY [Suspect]
     Active Substance: ANTIHEMOPHILIC FACTOR, HUMAN RECOMBINANT
     Indication: HAEMOPHILIA
     Dosage: UNK ; DURING SURGERY AND REHABILITAITON AFTER BILATERAL KNEE REPLACEMENT
     Dates: start: 20181017, end: 20181210
  4. KOVALTRY [Suspect]
     Active Substance: ANTIHEMOPHILIC FACTOR, HUMAN RECOMBINANT
     Indication: HAEMOPHILIA
     Dosage: 2000 U, QOD; PROPHYLAXIS
     Dates: start: 20181210, end: 202001
  5. JIVI [Concomitant]
     Active Substance: DAMOCTOCOG ALFA PEGOL
     Indication: PROPHYLAXIS
     Dosage: UNK; PROPHYLAIXIS
     Dates: start: 202001
  6. KOVALTRY [Suspect]
     Active Substance: ANTIHEMOPHILIC FACTOR, HUMAN RECOMBINANT
     Indication: HAEMOPHILIA
     Dosage: 2000 U EVERY WEEK; PROPHYLAXIS
     Dates: start: 20171104, end: 20181017

REACTIONS (2)
  - Endarterectomy [None]
  - Knee arthroplasty [None]

NARRATIVE: CASE EVENT DATE: 20171017
